FAERS Safety Report 11061977 (Version 1)
Quarter: 2015Q2

REPORT INFORMATION
  Report Type: Spontaneous
  Country: US (occurrence: None)
  Receive Date: 20150417
  Receipt Date: 20150417
  Transmission Date: 20150821
  Serious: Yes (Other)
  Sender: FDA-Public Use
  Company Number: 1713747-2014-999106

PATIENT
  Age: 60 Year
  Sex: Female
  Weight: 90 kg

DRUGS (3)
  1. LIBERTY CYCLER [Concomitant]
     Active Substance: DEVICE
  2. LIBERTY CYCLER CASSETTE [Concomitant]
     Active Substance: DEVICE
  3. DELFLEX [Suspect]
     Active Substance: CALCIUM CHLORIDE\DEXTROSE MONOHYDRATE\MAGNESIUM CHLORIDE\SODIUM CHLORIDE\SODIUM LACTATE
     Indication: CHRONIC KIDNEY DISEASE

REACTIONS (2)
  - Cerebrovascular accident [None]
  - Peritonitis [None]

NARRATIVE: CASE EVENT DATE: 20140712
